FAERS Safety Report 21966537 (Version 1)
Quarter: 2023Q1

REPORT INFORMATION
  Report Type: Spontaneous
  Country: US (occurrence: US)
  Receive Date: 20230208
  Receipt Date: 20230208
  Transmission Date: 20230417
  Serious: Yes (Other)
  Sender: FDA-Public Use
  Company Number: US-AUROBINDO-AUR-APL-2023-005519

PATIENT
  Age: 55 Year
  Sex: Male

DRUGS (2)
  1. REGADENOSON [Suspect]
     Active Substance: REGADENOSON
     Indication: Scan myocardial perfusion
     Dosage: UNK
     Route: 065
  2. REGADENOSON [Suspect]
     Active Substance: REGADENOSON
     Indication: Vasodilatation

REACTIONS (4)
  - Hemiplegic migraine [Recovered/Resolved]
  - Hypoaesthesia [Recovered/Resolved]
  - Sensory disturbance [Recovered/Resolved]
  - Asthenia [Recovered/Resolved]
